FAERS Safety Report 8389675-2 (Version None)
Quarter: 2012Q2

REPORT INFORMATION
  Report Type: 
  Country: None (occurrence: None)
  Receive Date: 20120529
  Receipt Date: 20120518
  Transmission Date: 20120825
  Serious: Yes (Hospitalization)
  Sender: FDA-Public Use
  Company Number: US-BRISTOL-MYERS SQUIBB COMPANY-16606717

PATIENT
  Age: 80 Year
  Sex: Male

DRUGS (6)
  1. HUMALOG [Suspect]
     Indication: TYPE 2 DIABETES MELLITUS
  2. PLACEBO [Suspect]
     Indication: TYPE 2 DIABETES MELLITUS
  3. METOPROLOL TARTRATE [Suspect]
  4. BLINDED: SAXAGLIPTIN [Suspect]
     Indication: TYPE 2 DIABETES MELLITUS
     Dates: start: 20100611, end: 20111219
  5. LANTUS [Suspect]
     Indication: TYPE 2 DIABETES MELLITUS
  6. FUROSEMIDE [Suspect]

REACTIONS (1)
  - ORTHOSTATIC HYPOTENSION [None]
